FAERS Safety Report 10388907 (Version 1)
Quarter: 2014Q1

REPORT INFORMATION
  Report Type: Spontaneous
  Country: US (occurrence: None)
  Receive Date: 20140306
  Receipt Date: 20140306
  Transmission Date: 20141002
  Serious: Yes (Other)
  Sender: FDA-Public Use
  Company Number: 163-21880-13021602

PATIENT
  Age: 68 Year
  Sex: Female
  Weight: 58.97 kg

DRUGS (11)
  1. REVLIMID [Suspect]
     Indication: PLASMA CELL MYELOMA
     Dosage: 5 MG, 1 IN 2 D, PO?
     Route: 048
     Dates: start: 20111103
  2. CENTRUM SILVER [Concomitant]
  3. COREG (CARVEDILOL) [Concomitant]
  4. FOLIC ACID [Concomitant]
  5. HUMALOG (INSULIN LISPRO) [Concomitant]
  6. IRON [Concomitant]
  7. LANTUS (INSULIN GLARGINE) [Concomitant]
  8. LASIX (FUROSEMIDE) [Concomitant]
  9. LEXAPRO (ESCITALOPRAM OXALATE) [Concomitant]
  10. NORVASC (AMLODIPINE BESILATE) [Concomitant]
  11. PRAVASTATIN SODIUM [Concomitant]

REACTIONS (4)
  - Platelet count decreased [None]
  - White blood cell count decreased [None]
  - Red blood cell count decreased [None]
  - Haemoglobin decreased [None]
